FAERS Safety Report 4367769-6 (Version None)
Quarter: 2004Q2

REPORT INFORMATION
  Report Type: 
  Country: None (occurrence: None)
  Receive Date: 20040601
  Receipt Date: 20040505
  Transmission Date: 20050107
  Serious: Yes (Hospitalization)
  Sender: FDA-Public Use
  Company Number: US-BRISTOL-MYERS SQUIBB COMPANY-12580197

PATIENT
  Age: 43 Year
  Sex: Male

DRUGS (5)
  1. ERBITUX [Suspect]
     Indication: COLORECTAL CANCER METASTATIC
     Route: 042
     Dates: start: 20040325, end: 20040325
  2. BENADRYL [Concomitant]
     Indication: PREMEDICATION
     Dates: start: 20040325, end: 20040325
  3. DECADRON [Concomitant]
     Indication: PREMEDICATION
     Dates: start: 20040325, end: 20040325
  4. TYLENOL [Concomitant]
     Indication: PREMEDICATION
     Dates: start: 20040325, end: 20040325
  5. CPT-11 [Concomitant]
     Indication: CHEMOTHERAPY

REACTIONS (3)
  - ABSCESS INTESTINAL [None]
  - DERMATITIS ACNEIFORM [None]
  - INTESTINAL PERFORATION [None]
